FAERS Safety Report 5602237-2 (Version None)
Quarter: 2008Q1

REPORT INFORMATION
  Report Type: 
  Country: None (occurrence: None)
  Receive Date: 20080125
  Receipt Date: 20080115
  Transmission Date: 20080703
  Serious: No
  Sender: FDA-Public Use
  Company Number: US-ASTRAZENECA-2006UW10744

PATIENT
  Age: 46 Year
  Sex: Male
  Weight: 120.9 kg

DRUGS (5)
  1. SEROQUEL [Suspect]
     Indication: DEPRESSION
     Route: 048
     Dates: start: 20010901, end: 20030910
  2. SEROQUEL [Suspect]
     Indication: SCHIZOPHRENIA
     Route: 048
     Dates: start: 20010901, end: 20030910
  3. HALDOL [Concomitant]
     Dates: start: 20010801
  4. ABILIFY [Concomitant]
     Dosage: 20 TO 30 MG
     Dates: start: 20020101
  5. GEODON [Concomitant]
     Dates: start: 20010101, end: 20020101

REACTIONS (4)
  - ABDOMINAL PAIN [None]
  - DIABETES MELLITUS [None]
  - HEPATIC STEATOSIS [None]
  - OBESITY [None]
